FAERS Safety Report 19278555 (Version 1)
Quarter: 2021Q2

REPORT INFORMATION
  Report Type: Spontaneous
  Country: US (occurrence: US)
  Receive Date: 20210520
  Receipt Date: 20210520
  Transmission Date: 20210717
  Serious: No
  Sender: FDA-Public Use
  Company Number: None

PATIENT
  Age: 51 Year
  Sex: Male
  Weight: 132.45 kg

DRUGS (1)
  1. PIPERACILLIN/TAZOBACTAM [Suspect]
     Active Substance: PIPERACILLIN SODIUM\TAZOBACTAM SODIUM
     Indication: SEPSIS
     Route: 042
     Dates: start: 20210518, end: 20210518

REACTIONS (8)
  - Nausea [None]
  - Vomiting [None]
  - Tachypnoea [None]
  - Angina pectoris [None]
  - Rash [None]
  - Respiratory depression [None]
  - Tachycardia [None]
  - Erythema multiforme [None]

NARRATIVE: CASE EVENT DATE: 20210518
